FAERS Safety Report 8433662-2 (Version None)
Quarter: 2012Q2

REPORT INFORMATION
  Report Type: 
  Country: None (occurrence: None)
  Receive Date: 20120613
  Receipt Date: 20120605
  Transmission Date: 20120825
  Serious: Yes (Hospitalization)
  Sender: FDA-Public Use
  Company Number: BE-EISAI INC-E2020-10896-SPO-BE

PATIENT
  Age: 76 Year
  Sex: Female

DRUGS (1)
  1. ARICEPT [Suspect]
     Route: 048
     Dates: start: 20111201, end: 20120601

REACTIONS (3)
  - CARDIAC DISORDER [None]
  - WITHDRAWAL SYNDROME [None]
  - CONFUSIONAL STATE [None]
